FAERS Safety Report 13187516 (Version 1)
Quarter: 2017Q1

REPORT INFORMATION
  Report Type: Spontaneous
  Country: US (occurrence: US)
  Receive Date: 20170206
  Receipt Date: 20170206
  Transmission Date: 20170428
  Serious: No
  Sender: FDA-Public Use
  Company Number: US-PFIZER INC-2016487996

PATIENT
  Age: 90 Year
  Sex: Female
  Weight: 68.4 kg

DRUGS (21)
  1. IBRANCE [Suspect]
     Active Substance: PALBOCICLIB
     Dosage: UNK, CYCLIC (ONCE A DAY FOR 21 DAYS, STOP FOR 7 DAYS)
     Dates: start: 20161020
  2. FUROSEMIDE. [Concomitant]
     Active Substance: FUROSEMIDE
     Indication: DIURETIC THERAPY
     Dosage: 20 MG, 1X/DAY
  3. PRESERVISION [Concomitant]
     Active Substance: MINERALS\VITAMINS
     Indication: EYE DISORDER
     Dosage: 2 DF, 1X/DAY
  4. POTASSIUM CHLORIDE. [Concomitant]
     Active Substance: POTASSIUM CHLORIDE
     Dosage: 20 MG, 2X/DAY
  5. LETROZOLE. [Concomitant]
     Active Substance: LETROZOLE
     Dosage: UNK
  6. BENAZEPRIL [Concomitant]
     Active Substance: BENAZEPRIL HYDROCHLORIDE
     Dosage: UNK, 1X/DAY
  7. NADOLOL. [Concomitant]
     Active Substance: NADOLOL
     Indication: BLOOD PRESSURE MANAGEMENT
     Dosage: 80 MG, 1X/DAY (IN THE EVENING)
  8. IBRANCE [Suspect]
     Active Substance: PALBOCICLIB
     Dosage: UNK
     Dates: start: 201610
  9. XGEVA [Concomitant]
     Active Substance: DENOSUMAB
     Dosage: 1 DF, EVERY 2 WEEKS
  10. AMIODARONE [Concomitant]
     Active Substance: AMIODARONE
     Indication: CARDIAC DISORDER
     Dosage: 200 MG, 1X/DAY (IN THE MORNING)
  11. ELIQUIS [Concomitant]
     Active Substance: APIXABAN
     Indication: ANTICOAGULANT THERAPY
     Dosage: 2.5 MG, 2X/DAY (ONE IN MORNING AND ONE IN EVENING)
  12. PAROXETINE. [Concomitant]
     Active Substance: PAROXETINE
     Indication: FEELING OF RELAXATION
     Dosage: 20 MG, 1X/DAY
  13. FLONASE [Concomitant]
     Active Substance: FLUTICASONE PROPIONATE
     Indication: SINUS DISORDER
     Dosage: 2 SPRAYS, 1X/DAY (EACH NOSTRIL)
     Route: 045
  14. CALCIUM [Concomitant]
     Active Substance: CALCIUM
     Dosage: 600 MG, 2X/DAY
  15. POTASSIUM CHLORIDE. [Concomitant]
     Active Substance: POTASSIUM CHLORIDE
     Dosage: 20 MG, 1X/DAY
  16. ALPRAZOLAM. [Concomitant]
     Active Substance: ALPRAZOLAM
     Indication: FEELING OF RELAXATION
     Dosage: 0.24 MG, AS NEEDED (UP TO 2 A DAY)
  17. IBRANCE [Suspect]
     Active Substance: PALBOCICLIB
     Indication: BREAST CANCER METASTATIC
     Dosage: 125 MG, CYCLIC (EVERY DAY FOR 21 CONSECUTIVE DAYS THEN 7 DAYS OFF)
     Route: 048
  18. CALCIUM D [Concomitant]
     Active Substance: CALCIUM\VITAMIN D
     Dosage: 1000 IU, 1X/DAY
  19. LOVASTATIN. [Concomitant]
     Active Substance: LOVASTATIN
     Indication: BLOOD CHOLESTEROL ABNORMAL
     Dosage: 20 MG, 1X/DAY
  20. FLUTICASONE. [Concomitant]
     Active Substance: FLUTICASONE
     Indication: SINUS DISORDER
     Dosage: 100 MG (2 SPRAYS)/50 MG PER SPRAY), 1X/DAY (EACH NOSTRIL)
     Route: 045
  21. NEUPOGEN [Concomitant]
     Active Substance: FILGRASTIM
     Dosage: 1 DF, EVERY 2 WEEKS

REACTIONS (5)
  - Product packaging issue [Unknown]
  - Sinus disorder [Unknown]
  - Alopecia [Unknown]
  - Epistaxis [Unknown]
  - Restlessness [Unknown]
